FAERS Safety Report 5248575-7 (Version None)
Quarter: 2007Q1

REPORT INFORMATION
  Report Type: 
  Country: None (occurrence: None)
  Receive Date: 20070222
  Receipt Date: 20070207
  Transmission Date: 20070707
  Serious: Yes (Other)
  Sender: FDA-Public Use
  Company Number: 033-22

PATIENT
  Age: 41 Year
  Sex: Female

DRUGS (2)
  1. TEVETEN HCT [Suspect]
     Indication: HYPERTENSION
     Dosage: 1 TABLET(S) QD
  2. COLO-PLEON (SULFASALAZINE) [Concomitant]

REACTIONS (4)
  - HYPERTENSION [None]
  - INSOMNIA [None]
  - MYALGIA [None]
  - NERVOUSNESS [None]
